FAERS Safety Report 18652470 (Version 2)
Quarter: 2020Q4

REPORT INFORMATION
  Report Type: Spontaneous
  Country: JP (occurrence: JP)
  Receive Date: 20201223
  Receipt Date: 20201228
  Transmission Date: 20210114
  Serious: Yes (Other)
  Sender: FDA-Public Use
  Company Number: JP-BEH-2020126380

PATIENT
  Age: 9 Month
  Sex: Female

DRUGS (2)
  1. HUMAN IMMUNOGLOBULIN (NC) (IMMUNOGLOBULIN HUMAN NORMAL) [Suspect]
     Active Substance: HUMAN IMMUNOGLOBULIN G
     Indication: KAWASAKI^S DISEASE
     Dosage: 2 GRAM PER KILOGRAM, QD
     Route: 042
  2. CEFTRIAXONE. [Concomitant]
     Active Substance: CEFTRIAXONE
     Indication: BACTERAEMIA
     Dosage: 100 MILLIGRAM/KILOGRAM, QD
     Route: 065

REACTIONS (3)
  - Type III immune complex mediated reaction [Unknown]
  - Drug hypersensitivity [Unknown]
  - Pericardial effusion [Recovering/Resolving]
